FAERS Safety Report 21176260 (Version 2)
Quarter: 2022Q3

REPORT INFORMATION
  Report Type: Report from Study
  Country: DE (occurrence: DE)
  Receive Date: 20220805
  Receipt Date: 20220826
  Transmission Date: 20221027
  Serious: Yes (Hospitalization, Other)
  Sender: FDA-Public Use
  Company Number: DE-009507513-2110DEU006256

PATIENT
  Age: 41 Year
  Sex: Male
  Weight: 62 kg

DRUGS (6)
  1. RAMIPRIL [Suspect]
     Active Substance: RAMIPRIL
     Indication: Hypertension
     Dosage: 2.5 MILLIGRAM DAILY; 2.5 MILLIGRAM, (QD)
     Route: 065
     Dates: start: 20210319
  2. PREGABALIN [Suspect]
     Active Substance: PREGABALIN
     Indication: Epilepsy
     Dosage: 350 MILLIGRAM DAILY; 350 MILLIGRAM, ONCE DAILY (QD)
     Route: 065
     Dates: start: 20201222
  3. METAMIZOLE [Suspect]
     Active Substance: METAMIZOLE
     Indication: Product used for unknown indication
     Dosage: ON DEMAND, 500MG
     Route: 065
     Dates: start: 20220315
  4. PANTOPRAZOLE [Suspect]
     Active Substance: PANTOPRAZOLE
     Indication: Chronic gastritis
     Dosage: 40 MILLIGRAM DAILY; 40 MG DAILY
     Route: 065
     Dates: start: 20211022
  5. LEVOMETHADONE [Suspect]
     Active Substance: LEVOMETHADONE
     Indication: Drug withdrawal maintenance therapy
     Dosage: 90 MILLIGRAM DAILY; 90 MILLIGRAM, ONCE DAILY (QD)
     Route: 065
     Dates: start: 20201222
  6. ZEPATIER [Suspect]
     Active Substance: ELBASVIR\GRAZOPREVIR
     Indication: Chronic hepatitis C
     Dosage: 50 MILLIGRAM DAILY; 50 MILLIGRAM, QD, 100MG/50MG, QD,DURATION 84DAYS
     Route: 065
     Dates: start: 20210930, end: 20211222

REACTIONS (14)
  - Diabetes mellitus [Not Recovered/Not Resolved]
  - Loss of consciousness [Recovered/Resolved]
  - Abdominal pain upper [Recovered/Resolved]
  - Decreased appetite [Not Recovered/Not Resolved]
  - Internal fixation of fracture [Recovered/Resolved]
  - Ligament sprain [Recovering/Resolving]
  - Coronavirus test positive [Recovered/Resolved]
  - Urinary tract infection [Not Recovered/Not Resolved]
  - Vomiting [Recovering/Resolving]
  - Headache [Unknown]
  - Vitamin D deficiency [Not Recovered/Not Resolved]
  - Laboratory test abnormal [Unknown]
  - Anal haemorrhage [Not Recovered/Not Resolved]
  - Leukocytosis [Recovered/Resolved]

NARRATIVE: CASE EVENT DATE: 20211007
